FAERS Safety Report 22340522 (Version 3)
Quarter: 2023Q2

REPORT INFORMATION
  Report Type: Report from Study
  Country: US (occurrence: US)
  Receive Date: 20230518
  Receipt Date: 20230623
  Transmission Date: 20230722
  Serious: Yes (Other)
  Sender: FDA-Public Use
  Company Number: US-BRISTOL-MYERS SQUIBB COMPANY-2023-061076

PATIENT
  Age: 60 Year
  Sex: Male
  Weight: 132.45 kg

DRUGS (1)
  1. ORENCIA [Suspect]
     Active Substance: ABATACEPT
     Indication: Rheumatoid arthritis
     Dosage: 125 MG/ML
     Route: 058
     Dates: start: 20201129

REACTIONS (5)
  - Device safety feature issue [Unknown]
  - Diabetes mellitus [Unknown]
  - Eye disorder [Unknown]
  - Device operational issue [Unknown]
  - Device leakage [Unknown]
